APPROVED DRUG PRODUCT: PRANDIN
Active Ingredient: REPAGLINIDE
Strength: 2MG **Federal Register determination that product was not discontinued or withdrawn for safety or effectiveness reasons**
Dosage Form/Route: TABLET;ORAL
Application: N020741 | Product #003
Applicant: GEMINI LABORATORIES LLC
Approved: Dec 22, 1997 | RLD: Yes | RS: No | Type: DISCN